FAERS Safety Report 21785888 (Version 1)
Quarter: 2022Q4

REPORT INFORMATION
  Report Type: Spontaneous
  Country: MK (occurrence: MK)
  Receive Date: 20221227
  Receipt Date: 20221227
  Transmission Date: 20230112
  Serious: Yes (Other)
  Sender: FDA-Public Use
  Company Number: MK-STRIDES ARCOLAB LIMITED-2022SP017428

PATIENT
  Sex: Female

DRUGS (8)
  1. PREDNISOLONE [Suspect]
     Active Substance: PREDNISOLONE
     Indication: Antisynthetase syndrome
     Dosage: UNK (MODERATE DOSES)
     Route: 065
     Dates: start: 201610, end: 201903
  2. PREDNISOLONE [Suspect]
     Active Substance: PREDNISOLONE
     Dosage: UNK (PREDNISONE)
     Route: 065
  3. PREDNISOLONE [Suspect]
     Active Substance: PREDNISOLONE
     Dosage: UNK (CONBINED WITH MYCOPHENOLATE MOFETIL )
     Route: 065
     Dates: start: 202111
  4. MYCOPHENOLATE MOFETIL [Suspect]
     Active Substance: MYCOPHENOLATE MOFETIL
     Indication: Antisynthetase syndrome
     Dosage: UNK
     Route: 065
     Dates: start: 202111
  5. AZATHIOPRINE [Suspect]
     Active Substance: AZATHIOPRINE
     Indication: Antisynthetase syndrome
     Dosage: UNK
     Route: 065
     Dates: start: 201610, end: 201903
  6. CHLOROQUINE [Suspect]
     Active Substance: CHLOROQUINE
     Indication: Antisynthetase syndrome
     Dosage: 250 MILLIGRAM (PER DAY) ( THERAPY CONTINUED   )
     Route: 065
  7. CHLOROQUINE [Suspect]
     Active Substance: CHLOROQUINE
     Dosage: UNK (COMBINED WITH MYCOPHENOLATE MOFETIL  AND PREDNISONE)
     Route: 065
     Dates: start: 202111
  8. SILDENAFIL [Suspect]
     Active Substance: SILDENAFIL
     Indication: Antisynthetase syndrome
     Dosage: 25 MILLIGRAM (EVERY SECOND DAY)
     Route: 065

REACTIONS (4)
  - Condition aggravated [Recovered/Resolved]
  - Antisynthetase syndrome [Recovered/Resolved]
  - COVID-19 pneumonia [Unknown]
  - Off label use [Unknown]

NARRATIVE: CASE EVENT DATE: 20201001
